FAERS Safety Report 8558261-3 (Version None)
Quarter: 2012Q3

REPORT INFORMATION
  Report Type: 
  Country: None (occurrence: None)
  Receive Date: 20120801
  Receipt Date: 20120724
  Transmission Date: 20120928
  Serious: No
  Sender: FDA-Public Use
  Company Number: US-ASTRAZENECA-2012SE52787

PATIENT
  Age: 55 Year
  Sex: Female

DRUGS (2)
  1. NEXIUM [Concomitant]
  2. PRILOSEC [Suspect]
     Route: 048

REACTIONS (2)
  - FEELING ABNORMAL [None]
  - ADVERSE EVENT [None]
